FAERS Safety Report 18993162 (Version 1)
Quarter: 2021Q1

REPORT INFORMATION
  Report Type: Report from Study
  Country: DE (occurrence: DE)
  Receive Date: 20210310
  Receipt Date: 20210310
  Transmission Date: 20210420
  Serious: Yes (Disabling, Other)
  Sender: FDA-Public Use
  Company Number: DE-HORIZON THERAPEUTICS-HZN-2021-000819

PATIENT

DRUGS (1)
  1. PROCYSBI [Suspect]
     Active Substance: CYSTEAMINE BITARTRATE
     Indication: CYSTINOSIS
     Dosage: 25 MG, PRN
     Route: 065
     Dates: start: 2015

REACTIONS (6)
  - Fatigue [Not Recovered/Not Resolved]
  - Product use issue [Not Recovered/Not Resolved]
  - Vomiting [Not Recovered/Not Resolved]
  - Sleep attacks [Not Recovered/Not Resolved]
  - Diarrhoea [Not Recovered/Not Resolved]
  - Skin odour abnormal [Not Recovered/Not Resolved]
